FAERS Safety Report 13024841 (Version 1)
Quarter: 2016Q4

REPORT INFORMATION
  Report Type: Spontaneous
  Country: US (occurrence: US)
  Receive Date: 20161213
  Receipt Date: 20161213
  Transmission Date: 20170207
  Serious: No
  Sender: FDA-Public Use
  Company Number: US-ROCHE-1787027

PATIENT
  Age: 40 Year
  Sex: Female

DRUGS (1)
  1. GAZYVA [Suspect]
     Active Substance: OBINUTUZUMAB
     Indication: CHRONIC LYMPHOCYTIC LEUKAEMIA
     Route: 065

REACTIONS (4)
  - Chills [Recovered/Resolved]
  - Throat irritation [Recovered/Resolved]
  - Hypoaesthesia oral [Recovered/Resolved]
  - Flushing [Recovered/Resolved]
